FAERS Safety Report 21754334 (Version 5)
Quarter: 2023Q1

REPORT INFORMATION
  Report Type: Spontaneous
  Country: US (occurrence: US)
  Receive Date: 20221220
  Receipt Date: 20230331
  Transmission Date: 20230417
  Serious: No
  Sender: FDA-Public Use
  Company Number: US-BRISTOL-MYERS SQUIBB COMPANY-2022-152690

PATIENT
  Age: 69 Year
  Sex: Female
  Weight: 25.85 kg

DRUGS (2)
  1. REVLIMID [Suspect]
     Active Substance: LENALIDOMIDE
     Indication: Plasma cell myeloma
     Dosage: FREQUENCY- 3WKSON,1WKOFF
     Route: 048
     Dates: start: 20211201
  2. ASPIRIN [Concomitant]
     Active Substance: ASPIRIN
     Indication: Product used for unknown indication

REACTIONS (9)
  - COVID-19 [Recovered/Resolved]
  - Pruritus [Not Recovered/Not Resolved]
  - Fatigue [Not Recovered/Not Resolved]
  - Urinary tract infection [Unknown]
  - Abdominal pain upper [Unknown]
  - Diarrhoea [Unknown]
  - Constipation [Unknown]
  - Hypertension [Recovering/Resolving]
  - Tooth disorder [Unknown]

NARRATIVE: CASE EVENT DATE: 20221120
